FAERS Safety Report 5646672-5 (Version None)
Quarter: 2008Q1

REPORT INFORMATION
  Report Type: 
  Country: None (occurrence: None)
  Receive Date: 20080303
  Receipt Date: 20080219
  Transmission Date: 20080703
  Serious: Yes (Death)
  Sender: FDA-Public Use
  Company Number: PHBS2008BR02758

PATIENT
  Age: 67 Year
  Sex: Female

DRUGS (4)
  1. CYCLOSPORINE [Suspect]
     Indication: RENAL TRANSPLANT
     Dosage: 100 MG/DAY
  2. AZATHIOPRINE [Suspect]
     Indication: RENAL TRANSPLANT
     Dosage: 150 MG/DAY
  3. PREDNISONE TAB [Suspect]
     Indication: RENAL TRANSPLANT
     Dosage: 5 MG/DAY
  4. RAPAMYCIN [Concomitant]
     Indication: RENAL TRANSPLANT
     Dosage: 2 MG/DAY

REACTIONS (6)
  - ASPIRATION PLEURAL CAVITY [None]
  - DYSPNOEA [None]
  - EPSTEIN-BARR VIRUS INFECTION [None]
  - HUMAN HERPESVIRUS 8 INFECTION [None]
  - PLEURAL EFFUSION [None]
  - PRIMARY EFFUSION LYMPHOMA [None]
